FAERS Safety Report 8976951 (Version 1)
Quarter: 2012Q4

REPORT INFORMATION
  Report Type: 
  Country: US (occurrence: US)
  Receive Date: 20121220
  Receipt Date: 20121220
  Transmission Date: 20130627
  Serious: Yes (Hospitalization)
  Sender: FDA-Public Use
  Company Number: US-BAYER-2012-132025

PATIENT
  Age: 29 Year
  Sex: Female

DRUGS (6)
  1. YAZ [Suspect]
  2. VICODIN [Concomitant]
     Indication: BREAKTHROUGH PAIN
  3. DILAUDID [Concomitant]
     Indication: BREAKTHROUGH PAIN
  4. METAMUCIL [Concomitant]
     Dosage: 45 minutes prior to each meal
  5. ZOLOFT [Concomitant]
     Dosage: 100 mg, daily
     Route: 048
  6. VICODIN ES [Concomitant]
     Indication: BREAKTHROUGH PAIN
     Dosage: 1 tablet p.o. q.4.h. p.r.n
     Route: 048

REACTIONS (1)
  - Pulmonary embolism [Recovering/Resolving]
